FAERS Safety Report 19353088 (Version 1)
Quarter: 2021Q2

REPORT INFORMATION
  Report Type: Spontaneous
  Country: CN (occurrence: CN)
  Receive Date: 20210601
  Receipt Date: 20210601
  Transmission Date: 20210717
  Serious: Yes (Other)
  Sender: FDA-Public Use
  Company Number: CN-PFIZER INC-2021571109

PATIENT
  Age: 2 Year
  Sex: Male
  Weight: 15 kg

DRUGS (5)
  1. AZITHROMYCIN ANHYDROUS. [Suspect]
     Active Substance: AZITHROMYCIN ANHYDROUS
     Indication: PNEUMONIA
     Dosage: 0.15 G, 1X/DAY
     Route: 041
     Dates: start: 20210516, end: 20210518
  2. IPRATROPIUM BROMIDE. [Concomitant]
     Active Substance: IPRATROPIUM BROMIDE
     Indication: PNEUMONIA
     Dosage: 1 ML, 2X/DAY
     Dates: start: 20210516, end: 20210518
  3. GLUCOSE [Concomitant]
     Active Substance: DEXTROSE
     Indication: VEHICLE SOLUTION USE
     Dosage: 200 ML, 1X/DAY
     Route: 041
     Dates: start: 20210516, end: 20210516
  4. BUDESONIDE. [Concomitant]
     Active Substance: BUDESONIDE
     Indication: PNEUMONIA
     Dosage: 1 MG, 2X/DAY
     Dates: start: 20210516, end: 20210518
  5. TERBUTALINE SULFATE. [Concomitant]
     Active Substance: TERBUTALINE SULFATE
     Indication: PNEUMONIA
     Dosage: 2.5 MG, 2X/DAY
     Dates: start: 20210516, end: 20210518

REACTIONS (3)
  - Tremor [Recovered/Resolved]
  - Off label use [Unknown]
  - Pain [Recovered/Resolved]

NARRATIVE: CASE EVENT DATE: 20210516
